FAERS Safety Report 18785545 (Version 1)
Quarter: 2021Q1

REPORT INFORMATION
  Report Type: Spontaneous
  Country: US (occurrence: US)
  Receive Date: 20210125
  Receipt Date: 20210125
  Transmission Date: 20210419
  Serious: No
  Sender: FDA-Public Use
  Company Number: US-ROCHE-2577423

PATIENT
  Age: 42 Year
  Sex: Female
  Weight: 72.64 kg

DRUGS (3)
  1. AMBIEN [Concomitant]
     Active Substance: ZOLPIDEM TARTRATE
     Indication: INSOMNIA
     Dosage: AS NEEDED BEFORE BED
     Route: 048
     Dates: start: 202003
  2. RITUXAN [Suspect]
     Active Substance: RITUXIMAB
     Indication: GRANULOMATOSIS WITH POLYANGIITIS
     Dosage: YES
     Route: 041
     Dates: start: 20190101
  3. RITUXAN [Suspect]
     Active Substance: RITUXIMAB
     Dosage: FOUR DOSES TWO WEEKS APART EACH DOSE WAS 1000MG ;ONGOING: NO
     Route: 042
     Dates: start: 20111101

REACTIONS (3)
  - Off label use [Unknown]
  - Insomnia [Unknown]
  - Off label use [Unknown]

NARRATIVE: CASE EVENT DATE: 201111
